FAERS Safety Report 4508087-2 (Version None)
Quarter: 2004Q4

REPORT INFORMATION
  Report Type: 
  Country: None (occurrence: None)
  Receive Date: 20041123
  Receipt Date: 20031010
  Transmission Date: 20050328
  Serious: No
  Sender: FDA-Public Use
  Company Number: US-GLAXOSMITHKLINE-A0429814A

PATIENT
  Age: 75 Year
  Sex: Male

DRUGS (7)
  1. WELLBUTRIN [Suspect]
     Indication: DEPRESSION
     Dosage: 300MG PER DAY
     Route: 048
  2. ZOLOFT [Suspect]
     Indication: AGITATION
     Route: 065
  3. EFFEXOR [Suspect]
     Indication: AGITATION
     Route: 065
  4. PAXIL [Suspect]
     Indication: AGITATION
     Route: 065
  5. LEXAPRO [Suspect]
     Indication: IRRITABILITY
     Route: 065
  6. LITHIUM [Concomitant]
     Route: 065
  7. THYROID TAB [Concomitant]
     Route: 065

REACTIONS (3)
  - AGITATION [None]
  - IRRITABILITY [None]
  - SEXUAL DYSFUNCTION [None]
